FAERS Safety Report 19589735 (Version 1)
Quarter: 2021Q3

REPORT INFORMATION
  Report Type: Spontaneous
  Country: BE (occurrence: BE)
  Receive Date: 20210721
  Receipt Date: 20210721
  Transmission Date: 20211014
  Serious: Yes (Other)
  Sender: FDA-Public Use
  Company Number: BE-ASTRAZENECA-2021A615992

PATIENT
  Sex: Female

DRUGS (1)
  1. FULVESTRANT. [Suspect]
     Active Substance: FULVESTRANT
     Route: 030

REACTIONS (1)
  - Disease progression [Unknown]
